FAERS Safety Report 6688006-3 (Version None)
Quarter: 2010Q2

REPORT INFORMATION
  Report Type: 
  Country: None (occurrence: None)
  Receive Date: 20100420
  Receipt Date: 20100407
  Transmission Date: 20101027
  Serious: Yes (Hospitalization)
  Sender: FDA-Public Use
  Company Number: NL-MEDIMMUNE-MEDI-0011059

PATIENT
  Sex: Male

DRUGS (2)
  1. SYNAGIS [Suspect]
     Route: 030
     Dates: start: 20091001, end: 20100208
  2. SYNAGIS [Suspect]
     Route: 030
     Dates: start: 20100308, end: 20100405

REACTIONS (2)
  - ADENOVIRUS INFECTION [None]
  - GASTROINTESTINAL DISORDER [None]
